FAERS Safety Report 15903073 (Version 1)
Quarter: 2019Q1

REPORT INFORMATION
  Report Type: Spontaneous
  Country: GB (occurrence: GB)
  Receive Date: 20190202
  Receipt Date: 20190202
  Transmission Date: 20190417
  Serious: Yes (Other)
  Sender: FDA-Public Use
  Company Number: GB-AUROBINDO-AUR-APL-2019-004609

PATIENT
  Age: 67 Year
  Sex: Female
  Weight: 63.5 kg

DRUGS (1)
  1. CIPROFLOXACIN FILM-COATED TABLETS [Suspect]
     Active Substance: CIPROFLOXACIN
     Indication: URINARY TRACT INFECTION
     Dosage: 2 DOSAGE FORM, DAILY
     Route: 048
     Dates: start: 20171001, end: 20171001

REACTIONS (6)
  - Fatigue [Unknown]
  - Dizziness postural [Recovered/Resolved]
  - Nausea [Unknown]
  - Rash [Unknown]
  - Headache [Recovered/Resolved]
  - Pain in extremity [Unknown]

NARRATIVE: CASE EVENT DATE: 20171001
